FAERS Safety Report 21739048 (Version 1)
Quarter: 2022Q4

REPORT INFORMATION
  Report Type: Spontaneous
  Country: US (occurrence: US)
  Receive Date: 20221216
  Receipt Date: 20221216
  Transmission Date: 20230113
  Serious: Yes (Other)
  Sender: FDA-Public Use
  Company Number: US-SA-SAC20221215001447

PATIENT
  Age: 58 Year
  Sex: Male

DRUGS (1)
  1. DUPIXENT [Suspect]
     Active Substance: DUPILUMAB
     Dosage: 300 MG, UNK
     Route: 058
     Dates: start: 20220328

REACTIONS (4)
  - Colitis ulcerative [Unknown]
  - Condition aggravated [Unknown]
  - Abdominal distension [Unknown]
  - Pain [Unknown]

NARRATIVE: CASE EVENT DATE: 20221101
